FAERS Safety Report 6242479-9 (Version None)
Quarter: 2009Q2

REPORT INFORMATION
  Report Type: 
  Country: None (occurrence: None)
  Receive Date: 20090624
  Receipt Date: 20090617
  Transmission Date: 20091009
  Serious: Yes (Death, Hospitalization)
  Sender: FDA-Public Use
  Company Number: US-BAYER-200822640GPV

PATIENT
  Age: 65 Year
  Sex: Female
  Weight: 37 kg

DRUGS (7)
  1. CAMPATH [Suspect]
     Indication: CHRONIC LYMPHOCYTIC LEUKAEMIA
     Route: 058
     Dates: start: 20071022, end: 20080222
  2. XALATAN [Concomitant]
     Indication: GLAUCOMA
     Dates: start: 20010322
  3. CLIMEN [Concomitant]
     Indication: ALOPECIA
     Dates: start: 19950101
  4. ANDROCUR [Concomitant]
     Indication: ALOPECIA
     Dates: start: 19950101
  5. ARTEOPTIC [Concomitant]
     Indication: GLAUCOMA
     Dates: start: 20010322
  6. MINOXIDIL [Concomitant]
     Indication: ALOPECIA
     Dates: start: 19950101
  7. DEANXIT [Concomitant]
     Indication: ALOPECIA
     Dates: start: 20010101

REACTIONS (3)
  - ANOREXIA [None]
  - DEATH [None]
  - PNEUMONIA [None]
